FAERS Safety Report 5661093-7 (Version None)
Quarter: 2008Q1

REPORT INFORMATION
  Report Type: 
  Country: None (occurrence: None)
  Receive Date: 20080305
  Receipt Date: 20080227
  Transmission Date: 20080703
  Serious: Yes (Other)
  Sender: FDA-Public Use
  Company Number: 2008004937

PATIENT
  Age: 73 Year
  Sex: Male
  Weight: 83.9154 kg

DRUGS (2)
  1. FRESHBURST LISTERINE (MENTHOL, METHYL SALICYLATE, EUCALYPTO, THYMOL) [Suspect]
     Indication: PAIN
     Dosage: A SWIG 5-6 PER DAY, ORAL
     Route: 048
     Dates: start: 20080127
  2. ATROVENT [Concomitant]

REACTIONS (1)
  - INCORRECT ROUTE OF DRUG ADMINISTRATION [None]
